FAERS Safety Report 8811232 (Version 2)
Quarter: 2012Q4

REPORT INFORMATION
  Report Type: 
  Country: US (occurrence: US)
  Receive Date: 20120927
  Receipt Date: 20121129
  Transmission Date: 20130627
  Serious: No
  Sender: FDA-Public Use
  Company Number: US-PFIZER INC-2012239292

PATIENT
  Age: 71 Year
  Sex: Female
  Weight: 56.69 kg

DRUGS (5)
  1. PRISTIQ [Suspect]
     Indication: EMOTIONAL DISTURBANCE NOS
     Dosage: 50 mg, 1x/day
     Dates: start: 20120706, end: 20120920
  2. PRISTIQ [Suspect]
     Indication: DEPRESSION
  3. WELLBUTRIN [Suspect]
     Dosage: 75 mg, 2x/day
     Dates: start: 20120921, end: 20120926
  4. SIMVASTATIN [Concomitant]
     Indication: HIGH CHOLESTEROL
     Dosage: UNK
     Dates: start: 2011
  5. RESTASIS [Concomitant]
     Indication: DRY EYES
     Dosage: UNK

REACTIONS (7)
  - Emotional disorder [Unknown]
  - Crying [Unknown]
  - Depressed mood [Unknown]
  - Malaise [Unknown]
  - Vertigo [Unknown]
  - Dizziness [Unknown]
  - Insomnia [Unknown]
